FAERS Safety Report 18897465 (Version 1)
Quarter: 2021Q1

REPORT INFORMATION
  Report Type: Spontaneous
  Country: US (occurrence: US)
  Receive Date: 20210215
  Receipt Date: 20210215
  Transmission Date: 20210420
  Serious: Yes (Hospitalization)
  Sender: FDA-Public Use
  Company Number: None

PATIENT
  Age: 83 Year
  Sex: Male
  Weight: 92.1 kg

DRUGS (1)
  1. CASIRIVIMAB AND IMDEVIMAB [Suspect]
     Active Substance: CASIRIVIMAB\IMDEVIMAB
     Indication: COVID-19
     Dosage: ?          OTHER FREQUENCY:ONCE;?
     Route: 042
     Dates: start: 20210208, end: 20210208

REACTIONS (7)
  - Hypoxia [None]
  - Acute myocardial infarction [None]
  - Troponin increased [None]
  - Hypotension [None]
  - Cardiac failure congestive [None]
  - Oxygen saturation decreased [None]
  - Fluid overload [None]

NARRATIVE: CASE EVENT DATE: 20210208
